FAERS Safety Report 4445791-9 (Version None)
Quarter: 2004Q3

REPORT INFORMATION
  Report Type: 
  Country: None (occurrence: None)
  Receive Date: 20040903
  Receipt Date: 20040824
  Transmission Date: 20050211
  Serious: Yes (Other)
  Sender: FDA-Public Use
  Company Number: 2004-BP-07280AU

PATIENT
  Sex: Female

DRUGS (3)
  1. MOBIC [Suspect]
     Indication: OSTEOARTHRITIS
     Dosage: 7.5 MG (7.5 MG, 7.5MG ORALLY DAILY)
     Route: 048
     Dates: start: 20010901, end: 20030329
  2. AMITRIPTYLINE HYDROCHLORIDE [Suspect]
     Indication: OSTEOARTHRITIS
     Dosage: 50 MG (NR, 50MG ORALLY DAILY)
     Route: 048
     Dates: start: 20010901, end: 20030330
  3. FOSINOPRIL SODIUM [Concomitant]

REACTIONS (5)
  - CONFUSIONAL STATE [None]
  - DYSPNOEA [None]
  - HYPONATRAEMIA [None]
  - LEFT VENTRICULAR FAILURE [None]
  - OEDEMA PERIPHERAL [None]
